FAERS Safety Report 5517704-X (Version None)
Quarter: 2007Q4

REPORT INFORMATION
  Report Type: 
  Country: None (occurrence: None)
  Receive Date: 20071114
  Receipt Date: 20071102
  Transmission Date: 20080405
  Serious: Yes (Death)
  Sender: FDA-Public Use
  Company Number: AU-GENENTECH-250827

PATIENT

DRUGS (1)
  1. METALYSE [Suspect]
     Indication: PULMONARY EMBOLISM
     Dosage: 150 MG, UNK

REACTIONS (1)
  - DEATH [None]
